FAERS Safety Report 8880556 (Version 2)
Quarter: 2012Q4

REPORT INFORMATION
  Report Type: 
  Country: JP (occurrence: JP)
  Receive Date: 20121101
  Receipt Date: 20121121
  Transmission Date: 20130627
  Serious: Yes (Other)
  Sender: FDA-Public Use
  Company Number: JP-SANOFI-AVENTIS-2012SA079219

PATIENT
  Age: 80 Year
  Sex: Male

DRUGS (2)
  1. ALLEGRA [Suspect]
     Indication: ITCHY SKIN
     Route: 048
  2. CORTICOSTEROIDS [Suspect]
     Indication: DRUG USE FOR UNKNOWN INDICATION
     Route: 061

REACTIONS (1)
  - Hypoacusis [Unknown]
